FAERS Safety Report 8549389-2 (Version None)
Quarter: 2012Q3

REPORT INFORMATION
  Report Type: 
  Country: None (occurrence: None)
  Receive Date: 20120720
  Receipt Date: 20120720
  Transmission Date: 20120928
  Serious: No
  Sender: FDA-Public Use
  Company Number: None

PATIENT
  Age: 79 Year
  Sex: Male
  Weight: 47.6277 kg

DRUGS (1)
  1. DILAUDID [Suspect]
     Indication: PAIN MANAGEMENT
     Dosage: 0.5 MG IN OR NOT SPECIFIED IV
     Route: 042
     Dates: start: 20110414, end: 20110414

REACTIONS (2)
  - APNOEA [None]
  - UNRESPONSIVE TO STIMULI [None]
